FAERS Safety Report 5201704-3 (Version None)
Quarter: 2007Q1

REPORT INFORMATION
  Report Type: 
  Country: None (occurrence: None)
  Receive Date: 20070104
  Receipt Date: 20061228
  Transmission Date: 20070707
  Serious: Yes (Hospitalization)
  Sender: FDA-Public Use
  Company Number: 234397

PATIENT
  Age: 80 Year
  Sex: Male

DRUGS (3)
  1. ACTIVACIN(ALTEPLASE) PWDR + SOLVENT,INFUSION SOLN [Suspect]
     Indication: CEREBRAL ARTERY EMBOLISM
     Dosage: 39 MG, SINGLE, INTRAVENOUS
     Route: 042
     Dates: start: 20060620, end: 20060620
  2. HEPARIN SODIUM INJECTION [Concomitant]
  3. RADICUT (EDARAVONE) [Concomitant]

REACTIONS (2)
  - ABDOMINAL MASS [None]
  - CHOLECYSTITIS ACUTE [None]
